FAERS Safety Report 22144745 (Version 3)
Quarter: 2023Q2

REPORT INFORMATION
  Report Type: Spontaneous
  Country: US (occurrence: None)
  Receive Date: 20230328
  Receipt Date: 20230405
  Transmission Date: 20230722
  Serious: Yes (Hospitalization, Other)
  Sender: FDA-Public Use
  Company Number: US-ROCHE-3314061

PATIENT
  Age: 39 Year
  Sex: Female
  Weight: 61.290 kg

DRUGS (3)
  1. OCREVUS [Suspect]
     Active Substance: OCRELIZUMAB
     Indication: Relapsing-remitting multiple sclerosis
     Dosage: LAST DOSE OF OCREVUS IN JUL/2022
     Route: 042
     Dates: start: 201905, end: 202207
  2. BACLOFEN [Concomitant]
     Active Substance: BACLOFEN
  3. GABAPENTIN [Concomitant]
     Active Substance: GABAPENTIN

REACTIONS (5)
  - Lymphatic disorder [Unknown]
  - Central nervous system inflammation [Not Recovered/Not Resolved]
  - Vasculitis [Not Recovered/Not Resolved]
  - Lymphoma [Not Recovered/Not Resolved]
  - B-cell lymphoma [Not Recovered/Not Resolved]

NARRATIVE: CASE EVENT DATE: 20230101
